FAERS Safety Report 21935683 (Version 1)
Quarter: 2023Q1

REPORT INFORMATION
  Report Type: Spontaneous
  Country: CH (occurrence: CH)
  Receive Date: 20230201
  Receipt Date: 20230201
  Transmission Date: 20230418
  Serious: Yes (Other)
  Sender: FDA-Public Use
  Company Number: None

PATIENT
  Age: 9 Year
  Sex: Female
  Weight: 23 kg

DRUGS (14)
  1. CLONAZEPAM [Suspect]
     Active Substance: CLONAZEPAM
     Indication: Cerebral palsy
     Route: 048
     Dates: start: 20230109, end: 20230109
  2. CLONAZEPAM [Suspect]
     Active Substance: CLONAZEPAM
     Indication: Cerebral palsy
     Route: 048
     Dates: start: 20230111
  3. CLONAZEPAM [Suspect]
     Active Substance: CLONAZEPAM
     Indication: Cerebral palsy
     Dosage: 3X/D
     Route: 048
  4. CHLORPROMAZINE [Suspect]
     Active Substance: CHLORPROMAZINE
     Indication: Cerebral palsy
     Route: 048
     Dates: start: 20230109, end: 20230109
  5. CHLORPROMAZINE [Suspect]
     Active Substance: CHLORPROMAZINE
     Indication: Cerebral palsy
     Route: 048
     Dates: start: 20230110
  6. CHLORPROMAZINE [Suspect]
     Active Substance: CHLORPROMAZINE
     Indication: Cerebral palsy
     Dosage: 3X/D
     Route: 048
  7. AZITHROMYCIN [Concomitant]
     Active Substance: AZITHROMYCIN
     Dosage: DAILY DOSE: 250 MILLIGRAM
  8. SERETIDE [Concomitant]
     Active Substance: FLUTICASONE PROPIONATE\SALMETEROL XINAFOATE
     Dosage: 2X/D
  9. VENTOLIN [Concomitant]
     Active Substance: ALBUTEROL SULFATE
     Dosage: 6X/D
  10. Maltofer [Concomitant]
     Dosage: 1X/WEEK
  11. Maltofer [Concomitant]
     Dosage: 2X/D
  12. DAFALGAN [Concomitant]
     Active Substance: ACETAMINOPHEN
     Dosage: 4X/D
  13. LAXIPEG [Concomitant]
     Dosage: 0.5 SACHET 1X/D
  14. Ospen [Concomitant]
     Dosage: DAILY DOSE: 750000 IU (INTERNATIONAL UNIT)

REACTIONS (3)
  - Accidental overdose [Recovered/Resolved]
  - Somnolence [Recovered/Resolved]
  - Product use in unapproved indication [Not Recovered/Not Resolved]

NARRATIVE: CASE EVENT DATE: 20230109
